FAERS Safety Report 10681927 (Version 2)
Quarter: 2015Q1

REPORT INFORMATION
  Report Type: Spontaneous
  Country: IT (occurrence: None)
  Receive Date: 20141224
  Receipt Date: 20150121
  Transmission Date: 20150720
  Serious: Yes (Hospitalization)
  Sender: FDA-Public Use
  Company Number: FK201406411

PATIENT
  Age: 90 Year
  Sex: Female

DRUGS (2)
  1. IMIPENEM AND CILASTATIN [Concomitant]
     Active Substance: CILASTATIN SODIUM\IMIPENEM
  2. LEVOFLOXACIN. [Suspect]
     Active Substance: LEVOFLOXACIN
     Indication: PRODUCT USED FOR UNKNOWN INDICATION
     Dosage: 1 DOSAGE FORMS, 1 IN 1 TOTAL, NOT OTHERWISE SPECIFIED
     Route: 042

REACTIONS (2)
  - Hepatitis [None]
  - Pancreatitis [None]

NARRATIVE: CASE EVENT DATE: 20141125
